FAERS Safety Report 6254487-2 (Version None)
Quarter: 2009Q3

REPORT INFORMATION
  Report Type: 
  Country: None (occurrence: None)
  Receive Date: 20090702
  Receipt Date: 20090629
  Transmission Date: 20100115
  Serious: Yes (Hospitalization)
  Sender: FDA-Public Use
  Company Number: DE-BRISTOL-MYERS SQUIBB COMPANY-14683494

PATIENT
  Age: 48 Year
  Sex: Male
  Weight: 108 kg

DRUGS (4)
  1. TAXOL [Suspect]
     Indication: NON-SMALL CELL LUNG CANCER
     Dosage: INITIAL DOSE:26SEP2005;WITHDRAWN ON 28DEC05
     Dates: start: 20051107, end: 20051107
  2. CISPLATIN [Suspect]
     Indication: NON-SMALL CELL LUNG CANCER
     Dosage: WITHDRAWN ON 28DEC05
     Dates: start: 20050926, end: 20051222
  3. VINORELBINE [Suspect]
     Indication: NON-SMALL CELL LUNG CANCER
     Dosage: RECENT DOSE:03JAN2006
     Dates: start: 20051129, end: 20060103
  4. RADIOTHERAPY [Suspect]
     Indication: NON-SMALL CELL LUNG CANCER
     Dosage: RECENT DOSE:04JAN2006.
     Dates: start: 20051128, end: 20060104

REACTIONS (6)
  - CHEST PAIN [None]
  - DEHYDRATION [None]
  - DYSPHAGIA [None]
  - NAUSEA [None]
  - PYREXIA [None]
  - VOMITING [None]
